FAERS Safety Report 25629906 (Version 2)
Quarter: 2025Q3

REPORT INFORMATION
  Report Type: Report from Study
  Country: CA (occurrence: CA)
  Receive Date: 20250731
  Receipt Date: 20250813
  Transmission Date: 20251021
  Serious: Yes (Hospitalization)
  Sender: ABBVIE
  Company Number: CA-ABBVIE-6394840

PATIENT
  Age: 63 Year
  Sex: Male

DRUGS (1)
  1. LUPRON [Suspect]
     Active Substance: LEUPROLIDE ACETATE
     Indication: Prostate cancer
     Dosage: FORM STRENGTH: 30 MG, DOSE FORM: POWDER AND SOLVENT FOR SUSPENSION FOR INJECTION IN PRE-FILLED SY...
     Route: 065
     Dates: start: 20241216

REACTIONS (7)
  - Multiple fractures [Recovering/Resolving]
  - Pulmonary contusion [Recovering/Resolving]
  - Head injury [Recovering/Resolving]
  - Road traffic accident [Recovering/Resolving]
  - Liver operation [Recovering/Resolving]
  - Hip arthroplasty [Recovering/Resolving]
  - Mobility decreased [Unknown]

NARRATIVE: CASE EVENT DATE: 20250101
